FAERS Safety Report 9968501 (Version 1)
Quarter: 2014Q1

REPORT INFORMATION
  Report Type: Report from Study
  Country: US (occurrence: US)
  Receive Date: 20140306
  Receipt Date: 20140306
  Transmission Date: 20141002
  Serious: No
  Sender: FDA-Public Use
  Company Number: US-ABBVIE-13P-163-1145801-00

PATIENT
  Age: 39 Year
  Sex: Female

DRUGS (23)
  1. HUMIRA [Suspect]
     Indication: CROHN^S DISEASE
     Dates: start: 20130723, end: 20130723
  2. HUMIRA [Suspect]
     Dates: start: 20130806, end: 20130806
  3. HUMIRA [Suspect]
     Dates: start: 20130820
  4. ADVAIR [Concomitant]
     Indication: ASTHMA
     Dosage: 500-50 DISKUS
     Route: 048
  5. ASACOL HD [Concomitant]
     Indication: CROHN^S DISEASE
     Route: 048
  6. PENTASA [Concomitant]
     Indication: CROHN^S DISEASE
     Dosage: AT BEDTIME
     Route: 054
  7. DEMOTIC OIL [Concomitant]
     Indication: ECZEMA
  8. ENTOCORT [Concomitant]
     Indication: CROHN^S DISEASE
     Dosage: 3 MG DAILY
     Route: 048
  9. FLEXERIL [Concomitant]
     Indication: MYALGIA
     Route: 048
  10. FLONASE [Concomitant]
     Indication: HYPERSENSITIVITY
     Route: 045
  11. LIDOCAINE [Concomitant]
     Indication: PAIN
     Dosage: AT BEDTIME
  12. LORTAB [Concomitant]
     Indication: PAIN
     Dosage: 10-235 MG
     Route: 048
  13. RECON BIRTH CONTROL [Concomitant]
     Indication: ENDOMETRIOSIS
     Dosage: DAILY
     Route: 048
  14. OXYCODONE HCL [Concomitant]
     Indication: PAIN
     Route: 048
  15. PRILOSEC [Concomitant]
     Indication: GASTROOESOPHAGEAL REFLUX DISEASE
     Route: 048
  16. PROAIR [Concomitant]
     Indication: ASTHMA
  17. PROMETHAZINE [Concomitant]
     Indication: NAUSEA
  18. PROZAC [Concomitant]
     Indication: DEPRESSION
     Dosage: IN THE MORNING
  19. ONE A DAY WOMEN^S [Concomitant]
     Indication: VITAMIN SUPPLEMENTATION
     Dosage: DAILY
     Route: 048
  20. XANAX [Concomitant]
     Indication: ANXIETY
     Route: 048
  21. XANAX [Concomitant]
     Indication: PANIC ATTACK
  22. ZOFRAN [Concomitant]
     Indication: NAUSEA
     Route: 048
  23. ZYRTEC [Concomitant]
     Indication: HYPERSENSITIVITY
     Dosage: 10 MG DAILY
     Route: 048

REACTIONS (5)
  - Asthenia [Unknown]
  - Fatigue [Unknown]
  - Fatigue [Unknown]
  - Drug ineffective [Not Recovered/Not Resolved]
  - Paranoia [Recovered/Resolved]
